FAERS Safety Report 13722335 (Version 1)
Quarter: 2017Q3

REPORT INFORMATION
  Report Type: Report from Study
  Country: US (occurrence: US)
  Receive Date: 20170706
  Receipt Date: 20170706
  Transmission Date: 20171127
  Serious: Yes (Death)
  Sender: FDA-Public Use
  Company Number: US-EISAI MEDICAL RESEARCH-EC-2017-025568

PATIENT
  Age: 96 Year
  Sex: Male
  Weight: 63.5 kg

DRUGS (26)
  1. NORVASC [Concomitant]
     Active Substance: AMLODIPINE BESYLATE
  2. VITAMIN B12 [Concomitant]
     Active Substance: CYANOCOBALAMIN
  3. PRILOSEC [Concomitant]
     Active Substance: OMEPRAZOLE MAGNESIUM
  4. LEVOTHYROXINE. [Concomitant]
     Active Substance: LEVOTHYROXINE
  5. LENVIMA [Suspect]
     Active Substance: LENVATINIB
     Route: 048
     Dates: start: 20170601, end: 2017
  6. METOPROLOL SUCCINATE. [Concomitant]
     Active Substance: METOPROLOL SUCCINATE
  7. ASPIRIN. [Concomitant]
     Active Substance: ASPIRIN
  8. ALPRAZOLAM. [Concomitant]
     Active Substance: ALPRAZOLAM
  9. LENVIMA [Suspect]
     Active Substance: LENVATINIB
     Indication: THYROID CANCER
     Route: 048
     Dates: start: 20170224, end: 201703
  10. LISINOPRIL. [Concomitant]
     Active Substance: LISINOPRIL
  11. MVI [Concomitant]
     Active Substance: VITAMINS
  12. LASIX [Concomitant]
     Active Substance: FUROSEMIDE
  13. NORCO [Concomitant]
     Active Substance: ACETAMINOPHEN\HYDROCODONE BITARTRATE
  14. VITAMIN D3 [Concomitant]
     Active Substance: CHOLECALCIFEROL
  15. CALCIUM GLUCONATE. [Concomitant]
     Active Substance: CALCIUM GLUCONATE
  16. MAGNESIUM OXIDE. [Concomitant]
     Active Substance: MAGNESIUM OXIDE
  17. OMEPRAZOLE. [Concomitant]
     Active Substance: OMEPRAZOLE
  18. TRAMADOL. [Concomitant]
     Active Substance: TRAMADOL
  19. TYLENOL [Concomitant]
     Active Substance: ACETAMINOPHEN
  20. FUROSEMIDE. [Concomitant]
     Active Substance: FUROSEMIDE
  21. XANAX [Concomitant]
     Active Substance: ALPRAZOLAM
  22. SYNTHROID [Concomitant]
     Active Substance: LEVOTHYROXINE SODIUM
  23. NITROGLYCERIN. [Concomitant]
     Active Substance: NITROGLYCERIN
  24. POTASSIUM CHLORIDE. [Concomitant]
     Active Substance: POTASSIUM CHLORIDE
  25. MULTIVITAMIN [Concomitant]
     Active Substance: VITAMINS
  26. AMLODIPINE [Concomitant]
     Active Substance: AMLODIPINE BESYLATE

REACTIONS (9)
  - Malaise [Unknown]
  - Stomatitis [Unknown]
  - Headache [Unknown]
  - Swelling [Unknown]
  - Myocardial infarction [Fatal]
  - Hypertension [Not Recovered/Not Resolved]
  - Diarrhoea [Unknown]
  - Chills [Not Recovered/Not Resolved]
  - Abdominal discomfort [Unknown]

NARRATIVE: CASE EVENT DATE: 2017
